FAERS Safety Report 10660465 (Version 1)
Quarter: 2014Q4

REPORT INFORMATION
  Report Type: Spontaneous
  Country: US (occurrence: US)
  Receive Date: 20141217
  Receipt Date: 20141217
  Transmission Date: 20150529
  Serious: No
  Sender: FDA-Public Use
  Company Number: US-GLAXOSMITHKLINE-A1086134A

PATIENT

DRUGS (5)
  1. ATORVASTATIN TABLET [Concomitant]
     Active Substance: ATORVASTATIN
     Route: 065
  2. HYDROCORT TABLET [Concomitant]
     Route: 065
  3. TESTOSTERONE. [Concomitant]
     Active Substance: TESTOSTERONE
     Dosage: CAP FORMULA
     Route: 065
  4. VOTRIENT [Suspect]
     Active Substance: PAZOPANIB HYDROCHLORIDE
     Indication: PRODUCT USED FOR UNKNOWN INDICATION
     Dosage: 200 MG TABLETS TAKE 800 MG BY MOUTH DAILY OR FOUR 200 MG TABLETS DAILY
     Route: 048
  5. LEVOTHYROXIN TABLET [Concomitant]
     Route: 065

REACTIONS (3)
  - Nausea [Unknown]
  - Vomiting [Unknown]
  - Diarrhoea [Unknown]

NARRATIVE: CASE EVENT DATE: 20140820
